FAERS Safety Report 7376787-5 (Version None)
Quarter: 2011Q1

REPORT INFORMATION
  Report Type: 
  Country: None (occurrence: None)
  Receive Date: 20110325
  Receipt Date: 20110316
  Transmission Date: 20110831
  Serious: Yes (Death, Hospitalization, Other)
  Sender: FDA-Public Use
  Company Number: US-AMGEN-USASP2010003913

PATIENT
  Age: 78 Year
  Sex: Female
  Weight: 39.909 kg

DRUGS (5)
  1. NORVASC [Concomitant]
     Dosage: UNK UNK, QD
     Route: 048
  2. PROCRIT [Suspect]
     Indication: APLASTIC ANAEMIA
     Dosage: 40000 IU, PRN
     Route: 058
     Dates: start: 20011119, end: 20070305
  3. CREON [Concomitant]
     Dosage: 20000 IU, TID
     Route: 048
     Dates: start: 19890101
  4. DIOVAN [Concomitant]
     Dosage: UNK UNK, QD
     Route: 048
  5. SYNTHROID [Concomitant]
     Dosage: 200 MG, QD
     Route: 048
     Dates: start: 20010101

REACTIONS (10)
  - GALLBLADDER OPERATION [None]
  - POST PROCEDURAL COMPLICATION [None]
  - HYPERGAMMAGLOBULINAEMIA BENIGN MONOCLONAL [None]
  - CARDIAC FAILURE CONGESTIVE [None]
  - ANAEMIA [None]
  - MYOCARDIAL INFARCTION [None]
  - SEPSIS [None]
  - THROMBOSIS [None]
  - BONE MARROW DISORDER [None]
  - CARDIAC DISORDER [None]
